FAERS Safety Report 5658746-3 (Version None)
Quarter: 2008Q1

REPORT INFORMATION
  Report Type: 
  Country: None (occurrence: None)
  Receive Date: 20080310
  Receipt Date: 20070404
  Transmission Date: 20080703
  Serious: No
  Sender: FDA-Public Use
  Company Number: US-BAYER-200711022BCC

PATIENT
  Age: 71 Year
  Sex: Male
  Weight: 100 kg

DRUGS (4)
  1. ALEVE [Suspect]
     Indication: PAIN
     Dosage: TOTAL DAILY DOSE: 880 MG  UNIT DOSE: 220 MG
     Route: 048
     Dates: start: 20050101
  2. LIPITOR [Concomitant]
  3. TOPROL-XL [Concomitant]
  4. PREVACID [Concomitant]

REACTIONS (1)
  - PAIN [None]
